FAERS Safety Report 26170011 (Version 2)
Quarter: 2025Q4

REPORT INFORMATION
  Report Type: Report from Study
  Country: JP (occurrence: JP)
  Receive Date: 20251217
  Receipt Date: 20251217
  Transmission Date: 20260118
  Serious: Yes (Death)
  Sender: ALEXION PHARMACEUTICALS
  Company Number: JP-ASTRAZENECA-230069024_032320_P_1

PATIENT
  Age: 50 Year
  Sex: Female
  Weight: 39 kg

DRUGS (18)
  1. ANIFROLUMAB [Suspect]
     Active Substance: ANIFROLUMAB
     Indication: Systemic lupus erythematosus
     Dosage: 300 MILLIGRAM, UNK, FREQUENCY: Q4WK
     Dates: start: 20220813, end: 20241008
  2. NEXIUM [Concomitant]
     Active Substance: ESOMEPRAZOLE MAGNESIUM
     Indication: Gastrooesophageal reflux disease
     Dosage: NUMBER OF SEPARATE DOSAGES UNKNOWN
     Route: 061
  3. PROGRAF [Concomitant]
     Active Substance: TACROLIMUS
     Indication: Systemic lupus erythematosus
     Dosage: NUMBER OF SEPARATE DOSAGES UNKNOWN
     Route: 061
  4. PREDNISOLONE [Concomitant]
     Active Substance: PREDNISOLONE
     Indication: Systemic lupus erythematosus
     Dosage: NUMBER OF SEPARATE DOSAGES UNKNOWN
     Route: 061
  5. PLAQUENIL [Concomitant]
     Active Substance: HYDROXYCHLOROQUINE SULFATE
     Indication: Systemic lupus erythematosus
     Dosage: NUMBER OF SEPARATE DOSAGES UNKNOWN
     Route: 061
  6. LIMAPROST [Concomitant]
     Active Substance: LIMAPROST
     Dosage: NUMBER OF SEPARATE DOSAGES UNKNOWN
     Route: 061
  7. MIYA-BM [Concomitant]
     Active Substance: CLOSTRIDIUM BUTYRICUM SPORES STRAIN M-55
     Dosage: NUMBER OF SEPARATE DOSAGES UNKNOWN
     Route: 061
  8. TOCOPHERYL NICOTINATE, D-.ALPHA. [Concomitant]
     Active Substance: TOCOPHERYL NICOTINATE, D-.ALPHA.
     Dosage: NUMBER OF SEPARATE DOSAGES UNKNOWN
     Route: 061
  9. CLOTIAZEPAM [Concomitant]
     Active Substance: CLOTIAZEPAM
     Dosage: NUMBER OF SEPARATE DOSAGES UNKNOWN
     Route: 061
  10. CARVEDILOL [Concomitant]
     Active Substance: CARVEDILOL
     Dosage: NUMBER OF SEPARATE DOSAGES UNKNOWN
     Route: 061
  11. CALCIUM POLYCARBOPHIL [Concomitant]
     Active Substance: CALCIUM POLYCARBOPHIL
     Dosage: NUMBER OF SEPARATE DOSAGES UNKNOWN
     Route: 061
  12. LOPEMIN [Concomitant]
     Dosage: NUMBER OF SEPARATE DOSAGES UNKNOWN
     Route: 061
  13. ASPIRIN [Concomitant]
     Active Substance: ASPIRIN
     Dosage: NUMBER OF SEPARATE DOSAGES UNKNOWN
     Route: 061
  14. DAYVIGO [Concomitant]
     Active Substance: LEMBOREXANT
     Dosage: NUMBER OF SEPARATE DOSAGES UNKNOWN
     Route: 061
  15. ALBUMIN TANNATE [Concomitant]
     Active Substance: ALBUMIN TANNATE
     Dosage: NUMBER OF SEPARATE DOSAGES UNKNOWN
     Route: 061
  16. OXETHAZAINE [Concomitant]
     Active Substance: OXETHAZAINE
     Dosage: DOSE UNKNOWN, AS REQUIRED
     Route: 061
  17. OLMESARTAN MEDOXOMIL [Concomitant]
     Active Substance: OLMESARTAN MEDOXOMIL
     Dosage: NUMBER OF SEPARATE DOSAGES UNKNOWN
     Route: 061
  18. HYALURONATE SODIUM [Concomitant]
     Active Substance: HYALURONATE SODIUM
     Dosage: DOSE UNKNOWN, AS REQUIRED

REACTIONS (1)
  - Lung adenocarcinoma [Fatal]

NARRATIVE: CASE EVENT DATE: 20240717
